FAERS Safety Report 5305895-5 (Version None)
Quarter: 2007Q2

REPORT INFORMATION
  Report Type: 
  Country: None (occurrence: None)
  Receive Date: 20070424
  Receipt Date: 20070420
  Transmission Date: 20071010
  Serious: Yes (Life-Threatening, Hospitalization)
  Sender: FDA-Public Use
  Company Number: US-GLAXOSMITHKLINE-A0648178A

PATIENT
  Age: 32 Year
  Sex: Male

DRUGS (7)
  1. EPZICOM [Suspect]
     Indication: HIV INFECTION
     Dosage: 1TAB PER DAY
     Route: 048
     Dates: start: 20070307, end: 20070420
  2. TIPRANAVIR [Concomitant]
  3. NORVIR [Concomitant]
  4. KALETRA [Concomitant]
  5. INVIRASE [Concomitant]
  6. TRUVADA [Concomitant]
  7. CLINDAMYCIN [Concomitant]

REACTIONS (2)
  - LACTIC ACIDOSIS [None]
  - RENAL DISORDER [None]
